FAERS Safety Report 20803052 (Version 15)
Quarter: 2023Q4

REPORT INFORMATION
  Report Type: Report from Study
  Country: SE (occurrence: SE)
  Receive Date: 20220509
  Receipt Date: 20231122
  Transmission Date: 20240109
  Serious: Yes (Other)
  Sender: FDA-Public Use
  Company Number: SE-JNJFOC-20220507627

PATIENT
  Age: 31 Year
  Sex: Female
  Weight: 57.7 kg

DRUGS (6)
  1. SPRAVATO [Suspect]
     Active Substance: ESKETAMINE
     Indication: Depression
     Dosage: 56 MG (2 DEVICES), 3 TOTAL DOSES
     Dates: start: 20220419, end: 20220426
  2. SPRAVATO [Suspect]
     Active Substance: ESKETAMINE
     Dosage: 84 MG (3 DEVICES), 43 TOTAL DOSES
     Dates: start: 20220428, end: 20220929
  3. VENLAFAXINE [Suspect]
     Active Substance: VENLAFAXINE HYDROCHLORIDE
     Indication: Product used for unknown indication
     Route: 065
  4. LITHIUM SULFATE [Concomitant]
     Active Substance: LITHIUM SULFATE
  5. LITHIUM SULFATE [Concomitant]
     Active Substance: LITHIUM SULFATE
  6. LITHIUM SULFATE [Concomitant]
     Active Substance: LITHIUM SULFATE

REACTIONS (17)
  - Suicidal ideation [Recovered/Resolved]
  - Hypothyroidism [Recovering/Resolving]
  - Decreased appetite [Not Recovered/Not Resolved]
  - Urine output increased [Recovering/Resolving]
  - Dyskinesia [Recovered/Resolved]
  - Epistaxis [Recovered/Resolved]
  - Nausea [Recovered/Resolved]
  - Dizziness [Recovered/Resolved]
  - Derealisation [Recovered/Resolved]
  - Euphoric mood [Recovered/Resolved]
  - Anxiety [Recovered/Resolved]
  - Night sweats [Not Recovered/Not Resolved]
  - Feeling drunk [Recovered/Resolved]
  - Fatigue [Recovered/Resolved]
  - Hypertension [Recovered/Resolved]
  - Depression [Recovered/Resolved]
  - Drug ineffective [Unknown]

NARRATIVE: CASE EVENT DATE: 20220419
